FAERS Safety Report 19987392 (Version 3)
Quarter: 2022Q1

REPORT INFORMATION
  Report Type: Spontaneous
  Country: US (occurrence: US)
  Receive Date: 20211023
  Receipt Date: 20220109
  Transmission Date: 20220423
  Serious: No
  Sender: FDA-Public Use
  Company Number: US-JNJFOC-20211018173

PATIENT
  Age: 59 Year
  Sex: Female
  Weight: 76.272 kg

DRUGS (5)
  1. TREMFYA [Suspect]
     Active Substance: GUSELKUMAB
     Indication: Psoriasis
     Route: 065
     Dates: start: 20200625
  2. TREMFYA [Suspect]
     Active Substance: GUSELKUMAB
     Route: 058
     Dates: start: 20191219
  3. CARBATROL [Concomitant]
     Active Substance: CARBAMAZEPINE
     Indication: Seizure
     Route: 065
     Dates: start: 20160911
  4. PHENOBARBITAL [Concomitant]
     Active Substance: PHENOBARBITAL
     Indication: Seizure
     Route: 065
     Dates: start: 19790308
  5. TOPAMAX [Concomitant]
     Active Substance: TOPIRAMATE
     Indication: Seizure
     Route: 065

REACTIONS (1)
  - Psoriasis [Recovered/Resolved]

NARRATIVE: CASE EVENT DATE: 20200911
